FAERS Safety Report 5834790-8 (Version None)
Quarter: 2008Q3

REPORT INFORMATION
  Report Type: 
  Country: None (occurrence: None)
  Receive Date: 20080804
  Receipt Date: 20080722
  Transmission Date: 20090109
  Serious: Yes (Hospitalization)
  Sender: FDA-Public Use
  Company Number: 2008-02522

PATIENT
  Age: 69 Year
  Sex: Male
  Weight: 65.3 kg

DRUGS (4)
  1. VELCADE [Suspect]
     Indication: WALDENSTROM'S MACROGLOBULINAEMIA
     Dosage: 1.6 MG/M2
     Dates: start: 20080508, end: 20080619
  2. RITUXAN [Suspect]
     Indication: WALDENSTROM'S MACROGLOBULINAEMIA
     Dosage: 375 MG/M2
     Dates: start: 20080508, end: 20080529
  3. OLMESARTAN MEDOXOMIL [Concomitant]
  4. FOSAMAX [Concomitant]

REACTIONS (2)
  - RENAL FAILURE [None]
  - TUMOUR LYSIS SYNDROME [None]
